FAERS Safety Report 5767909-8 (Version None)
Quarter: 2008Q2

REPORT INFORMATION
  Report Type: 
  Country: None (occurrence: None)
  Receive Date: 20080612
  Receipt Date: 20080514
  Transmission Date: 20081010
  Serious: Yes (Disabling, Other)
  Sender: FDA-Public Use
  Company Number: US-PFIZER INC-2008043549

PATIENT
  Sex: Male
  Weight: 49.9 kg

DRUGS (3)
  1. ZYVOX [Suspect]
     Indication: STAPHYLOCOCCAL INFECTION
     Route: 042
     Dates: start: 20071101, end: 20080111
  2. ZYVOX [Suspect]
     Indication: PROPHYLAXIS
     Route: 048
     Dates: start: 20080111, end: 20080115
  3. ZYVOX [Suspect]
     Route: 048
     Dates: start: 20080115, end: 20080401

REACTIONS (3)
  - BLINDNESS [None]
  - SCOTOMA [None]
  - VISUAL ACUITY REDUCED [None]
